FAERS Safety Report 13876152 (Version 1)
Quarter: 2017Q3

REPORT INFORMATION
  Report Type: Spontaneous
  Country: US (occurrence: US)
  Receive Date: 20170817
  Receipt Date: 20170817
  Transmission Date: 20171127
  Serious: No
  Sender: FDA-Public Use
  Company Number: US-PFIZER INC-2017352971

PATIENT
  Age: 16 Year
  Sex: Female

DRUGS (1)
  1. JUNIOR STRENGTH ADVIL [Suspect]
     Active Substance: IBUPROFEN
     Dosage: UNK ((TOOK 4/ THEN TOOK 4 ANOTHER TIME AND ANOTHER 4 AFTER THAT/ SPACED OUT THE TIME TO 6 TO 8 HOUR)

REACTIONS (3)
  - Intentional product use issue [Unknown]
  - Vomiting [Unknown]
  - Intentional product misuse [Unknown]
